FAERS Safety Report 23144382 (Version 1)
Quarter: 2023Q4

REPORT INFORMATION
  Report Type: Spontaneous
  Country: US (occurrence: None)
  Receive Date: 20231103
  Receipt Date: 20231103
  Transmission Date: 20240109
  Serious: Yes (Other)
  Sender: FDA-Public Use
  Company Number: None

PATIENT
  Age: 45 Year
  Sex: Female
  Weight: 71.55 kg

DRUGS (3)
  1. REBYOTA [Suspect]
     Active Substance: DONOR HUMAN STOOL
     Indication: Enterocolitis
     Dosage: OTHER FREQUENCY : ONCE;?
     Route: 054
     Dates: start: 20231030, end: 20231030
  2. REBYOTA [Suspect]
     Active Substance: DONOR HUMAN STOOL
     Indication: Clostridium difficile infection
  3. REBYOTA [Suspect]
     Active Substance: DONOR HUMAN STOOL
     Indication: Infection

REACTIONS (5)
  - Pyrexia [None]
  - Chills [None]
  - Headache [None]
  - Abdominal pain upper [None]
  - Diarrhoea [None]

NARRATIVE: CASE EVENT DATE: 20231101
